FAERS Safety Report 6763247-5 (Version None)
Quarter: 2010Q2

REPORT INFORMATION
  Report Type: 
  Country: None (occurrence: None)
  Receive Date: 20100608
  Receipt Date: 20100608
  Transmission Date: 20101027
  Serious: Yes (Life-Threatening)
  Sender: FDA-Public Use
  Company Number: None

PATIENT
  Age: 89 Year
  Sex: Female

DRUGS (1)
  1. DOPAMINE HCL [Suspect]
     Dosage: 6 MCG/KG/MINUTE IV DRIP
     Route: 041
     Dates: start: 20090929, end: 20090929

REACTIONS (8)
  - APNOEA [None]
  - HYPOVENTILATION [None]
  - MYDRIASIS [None]
  - PAIN [None]
  - POSTURING [None]
  - PUPILLARY REFLEX IMPAIRED [None]
  - SCREAMING [None]
  - VENTRICULAR FIBRILLATION [None]
